FAERS Safety Report 12712799 (Version 3)
Quarter: 2016Q4

REPORT INFORMATION
  Report Type: Report from Study
  Country: AU (occurrence: AU)
  Receive Date: 20160902
  Receipt Date: 20161223
  Transmission Date: 20170207
  Serious: Yes (Hospitalization, Other)
  Sender: FDA-Public Use
  Company Number: AU-REGENERON PHARMACEUTICALS, INC.-2016-21165

PATIENT

DRUGS (1)
  1. EYLEA [Suspect]
     Active Substance: AFLIBERCEPT
     Indication: NEOVASCULAR AGE-RELATED MACULAR DEGENERATION
     Dosage: 2 MG, UNDISCLOSED
     Route: 031
     Dates: start: 20151210

REACTIONS (7)
  - Pneumonia [Unknown]
  - Atrial fibrillation [Unknown]
  - Fall [Unknown]
  - Haemorrhage [Unknown]
  - Arthritis [Unknown]
  - Cerebrovascular accident [Unknown]
  - Peripheral swelling [Unknown]

NARRATIVE: CASE EVENT DATE: 201607
